FAERS Safety Report 4433899-3 (Version None)
Quarter: 2004Q3

REPORT INFORMATION
  Report Type: 
  Country: None (occurrence: None)
  Receive Date: 20040825
  Receipt Date: 20040805
  Transmission Date: 20050211
  Serious: Yes (Hospitalization)
  Sender: FDA-Public Use
  Company Number: A02200402423

PATIENT
  Age: 56 Year
  Sex: Male

DRUGS (6)
  1. ELOXATIN [Suspect]
     Indication: HEPATIC NEOPLASM MALIGNANT RECURRENT
     Dosage: 6 MG QD
     Route: 042
     Dates: start: 20040608, end: 20040608
  2. XELODA [Suspect]
     Indication: HEPATIC NEOPLASM MALIGNANT RECURRENT
     Dosage: 4 MG QD
     Route: 048
     Dates: end: 20040622
  3. XELODA [Suspect]
     Indication: METASTASES TO LUNG
     Dosage: 4 MG QD
     Route: 048
     Dates: end: 20040622
  4. PROGRAF [Suspect]
     Indication: LIVER TRANSPLANT
     Dosage: SEE IMAGE
     Route: 048
     Dates: start: 20010615, end: 20040607
  5. PROGRAF [Suspect]
     Indication: LIVER TRANSPLANT
     Dosage: SEE IMAGE
     Route: 048
     Dates: start: 20040608, end: 20040621
  6. PROGRAF [Suspect]
     Indication: LIVER TRANSPLANT
     Dosage: SEE IMAGE
     Route: 048
     Dates: start: 20040622

REACTIONS (4)
  - DEHYDRATION [None]
  - DIARRHOEA [None]
  - DRUG LEVEL INCREASED [None]
  - RENAL FAILURE ACUTE [None]
